FAERS Safety Report 18392110 (Version 1)
Quarter: 2020Q4

REPORT INFORMATION
  Report Type: Spontaneous
  Country: US (occurrence: US)
  Receive Date: 20201016
  Receipt Date: 20201016
  Transmission Date: 20210114
  Serious: Yes (Other)
  Sender: FDA-Public Use
  Company Number: US-ELI_LILLY_AND_COMPANY-US202010003044

PATIENT
  Sex: Female

DRUGS (4)
  1. HUMALOG [Suspect]
     Active Substance: INSULIN LISPRO
     Indication: DIABETES MELLITUS
     Dosage: UNK, UNKNOWN
     Route: 065
  2. BASAGLAR [Suspect]
     Active Substance: INSULIN GLARGINE
     Indication: DIABETES MELLITUS
     Dosage: 65 U, UNKNOWN
     Route: 065
  3. GLIMEPIRIDE. [Concomitant]
     Active Substance: GLIMEPIRIDE
     Indication: DIABETES MELLITUS
     Dosage: 2 MG, BID
  4. GLIMEPIRIDE. [Concomitant]
     Active Substance: GLIMEPIRIDE
     Dosage: 4 MG, BID

REACTIONS (5)
  - Glycosylated haemoglobin increased [Unknown]
  - Blood glucose decreased [Unknown]
  - Blindness [Unknown]
  - Blood glucose increased [Recovered/Resolved]
  - Tremor [Unknown]
